FAERS Safety Report 5852741-7 (Version None)
Quarter: 2008Q3

REPORT INFORMATION
  Report Type: 
  Country: None (occurrence: None)
  Receive Date: 20080821
  Receipt Date: 20080811
  Transmission Date: 20090109
  Serious: Yes (Death)
  Sender: FDA-Public Use
  Company Number: US-AVENTIS-200814337EU

PATIENT
  Age: 3 Month
  Sex: Female

DRUGS (3)
  1. PSEUDOEPHEDRINE HCL [Suspect]
     Dosage: DOSE: UNK
  2. DEXTROMETHORPHAN [Suspect]
     Dosage: DOSE: UNK
  3. CARBINOXAMINE [Suspect]
     Dosage: DOSE: UNK

REACTIONS (1)
  - PNEUMONIA VIRAL [None]
